FAERS Safety Report 5004895-2 (Version None)
Quarter: 2006Q1

REPORT INFORMATION
  Report Type: 
  Country: None (occurrence: None)
  Receive Date: 20060321
  Receipt Date: 20060112
  Transmission Date: 20060701
  Serious: No
  Sender: FDA-Public Use
  Company Number: 2006US000143

PATIENT
  Age: 75 Year
  Sex: Male

DRUGS (5)
  1. VESICARE [Suspect]
     Indication: HYPERTONIC BLADDER
     Dosage: 10 MG/ UNK, ORAL
     Route: 048
     Dates: start: 20051101
  2. COUMADIN [Concomitant]
  3. TOPROL-XL [Concomitant]
  4. LASIX (FUROSEMIDE, FUROSEMIDE SODIUM) [Concomitant]
  5. INSPRA [Concomitant]

REACTIONS (1)
  - URINARY INCONTINENCE [None]
